FAERS Safety Report 9324245 (Version 1)
Quarter: 2013Q2

REPORT INFORMATION
  Report Type: Spontaneous
  Country: US (occurrence: None)
  Receive Date: 20130529
  Receipt Date: 20130529
  Transmission Date: 20140414
  Serious: Yes (Other)
  Sender: FDA-Public Use
  Company Number: 1726529

PATIENT
  Age: 50 Year
  Sex: Male

DRUGS (19)
  1. (DEXMEDETOMIDINE HYDROCHLORIDE) [Suspect]
     Indication: DELIRIUM TREMENS
     Dosage: 1 MCG/KG/H
     Route: 041
  2. (DEXMEDETOMIDINE HYDROCHLORIDE) [Suspect]
     Indication: RESPIRATORY DEPRESSION
     Dosage: 1 MCG/KG/H
     Route: 041
  3. (DEXMEDETOMIDINE HYDROCHLORIDE) [Suspect]
     Indication: PROPHYLAXIS
     Dosage: 1 MCG/KG/H
     Route: 041
  4. (DEXMEDETOMIDINE HYDROCHLORIDE) [Suspect]
     Indication: EXTUBATION
     Dosage: 1 MCG/KG/H
     Route: 041
  5. (LORAZEPAM) [Concomitant]
  6. (MIDAZOLAM) [Concomitant]
  7. (PROPOFOL) [Concomitant]
  8. (DEXTROSE AND SODIUM CHLORIDE) [Concomitant]
  9. (HEPARIN) [Concomitant]
  10. (MULTIVITAMINS, OTHER COMBINATIONS) [Concomitant]
  11. (BISACODYL) [Concomitant]
  12. (PANTOPRAZOLE) [Concomitant]
  13. (AZITHROMYCIN) [Concomitant]
  14. (CEFTRIAXONE) [Concomitant]
  15. PHENYTOIN [Concomitant]
  16. (HALOPERIDOL) [Concomitant]
  17. (ENOXAPARIN) [Concomitant]
  18. (ZIPRASIDONE) [Concomitant]
  19. (FOLIC ACID) [Concomitant]

REACTIONS (3)
  - Polyuria [None]
  - Incorrect dose administered [None]
  - Specific gravity urine decreased [None]
